FAERS Safety Report 9735877 (Version 3)
Quarter: 2015Q3

REPORT INFORMATION
  Report Type: Spontaneous
  Country: US (occurrence: US)
  Receive Date: 20131206
  Receipt Date: 20150804
  Transmission Date: 20151125
  Serious: No
  Sender: FDA-Public Use
  Company Number: US-GILEAD-2009-0023994

PATIENT
  Age: 54 Year
  Sex: Male
  Weight: 79.83 kg

DRUGS (12)
  1. SENSIPAR [Concomitant]
     Active Substance: CINACALCET HYDROCHLORIDE
  2. AMBIEN [Concomitant]
     Active Substance: ZOLPIDEM TARTRATE
  3. PLAVIX [Concomitant]
     Active Substance: CLOPIDOGREL BISULFATE
  4. LETAIRIS [Suspect]
     Active Substance: AMBRISENTAN
     Indication: PULMONARY ARTERIAL HYPERTENSION
     Route: 048
     Dates: start: 20090812, end: 20090930
  5. FOLIC ACID. [Concomitant]
     Active Substance: FOLIC ACID
  6. LACTULOSE. [Concomitant]
     Active Substance: LACTULOSE
  7. VENTAVIS [Concomitant]
     Active Substance: ILOPROST
     Dates: start: 20090615
  8. PARACETAMOL/HYDROCODONE BITARTRATE [Concomitant]
  9. PREVACID [Concomitant]
     Active Substance: LANSOPRAZOLE
  10. LANTUS [Concomitant]
     Active Substance: INSULIN GLARGINE
  11. FUROSEMIDE. [Concomitant]
     Active Substance: FUROSEMIDE
  12. NOVOLIN R [Concomitant]
     Active Substance: INSULIN HUMAN

REACTIONS (4)
  - Malaise [Unknown]
  - Hepatomegaly [Unknown]
  - Abdominal pain [Unknown]
  - Dizziness [Unknown]
